FAERS Safety Report 5823842-4 (Version None)
Quarter: 2008Q3

REPORT INFORMATION
  Report Type: 
  Country: None (occurrence: None)
  Receive Date: 20080725
  Receipt Date: 20080716
  Transmission Date: 20090109
  Serious: Yes (Hospitalization, Other)
  Sender: FDA-Public Use
  Company Number: BR-PFIZER INC-2008060173

PATIENT
  Sex: Female
  Weight: 71 kg

DRUGS (15)
  1. LIPITOR [Suspect]
     Indication: BLOOD CHOLESTEROL INCREASED
     Route: 048
  2. OS-CAL D [Concomitant]
  3. CHONDROITIN/GLUCOSAMINE [Concomitant]
  4. MONOCORDIL [Concomitant]
     Indication: CARDIAC DISORDER
  5. ACETYLSALICYLIC ACID SRT [Concomitant]
     Dates: start: 20070701
  6. ATENOLOL [Concomitant]
     Indication: BLOOD PRESSURE
     Dates: start: 20070601
  7. OMEPRAZOLE [Concomitant]
     Indication: HERNIA
     Dosage: FREQ:ONE TABLET EVERY OTHER DAY
     Dates: start: 20070801
  8. OMEPRAZOLE [Concomitant]
     Indication: GASTRIC DISORDER
  9. CLORANA [Concomitant]
     Indication: POLYURIA
     Dosage: FREQ:HALF TABLET ONCE A DAY
     Dates: start: 20071201
  10. CLORANA [Concomitant]
     Indication: BLOOD PRESSURE
  11. PAROXETINE HCL [Concomitant]
     Indication: DEPRESSION
     Dates: start: 20070801, end: 20080601
  12. OTILONIUM BROMIDE [Concomitant]
     Indication: HERNIA
     Dosage: FREQ:TWICE DAILY BEFORE MEALS
     Dates: start: 20080201
  13. OTILONIUM BROMIDE [Concomitant]
     Indication: GASTROOESOPHAGEAL REFLUX DISEASE
  14. BUPROPION HYDROCHLORIDE [Concomitant]
     Indication: DEPRESSION
     Dosage: FREQ:ONE TABLET ONCE A DAY
     Dates: start: 20080601
  15. VENOCUR TRIPLEX [Concomitant]
     Indication: HAEMORRHOIDS
     Dates: start: 20080601, end: 20080701

REACTIONS (4)
  - ANGINA PECTORIS [None]
  - HYPERTENSION [None]
  - OSTEOPOROSIS [None]
  - TENDON RUPTURE [None]
